FAERS Safety Report 5919796-2 (Version None)
Quarter: 2008Q4

REPORT INFORMATION
  Report Type: 
  Country: None (occurrence: None)
  Receive Date: 20081015
  Receipt Date: 20081003
  Transmission Date: 20090506
  Serious: Yes (Other)
  Sender: FDA-Public Use
  Company Number: US-PFIZER INC-2005019932

PATIENT
  Sex: Male
  Weight: 79.4 kg

DRUGS (2)
  1. TIKOSYN [Suspect]
     Indication: ATRIAL FIBRILLATION
     Route: 048
  2. TIKOSYN [Suspect]
     Route: 048

REACTIONS (8)
  - ATRIAL FIBRILLATION [None]
  - DRUG INEFFECTIVE [None]
  - HYPERTENSION [None]
  - INCONTINENCE [None]
  - NEOPLASM PROSTATE [None]
  - PROSTATIC SPECIFIC ANTIGEN INCREASED [None]
  - PROSTATITIS [None]
  - PROTEIN URINE PRESENT [None]
